FAERS Safety Report 24064061 (Version 1)
Quarter: 2024Q3

REPORT INFORMATION
  Report Type: Spontaneous
  Country: GB (occurrence: GB)
  Receive Date: 20240709
  Receipt Date: 20240709
  Transmission Date: 20241017
  Serious: Yes (Other)
  Sender: RANBAXY
  Company Number: GB-SUN PHARMACEUTICAL INDUSTRIES LTD-2024RR-455429

PATIENT
  Age: 73 Year
  Sex: Female

DRUGS (2)
  1. TRABECTEDIN [Suspect]
     Active Substance: TRABECTEDIN
     Indication: Extraskeletal myxoid chondrosarcoma
     Dosage: 1.5 MILLIGRAM/SQ. METER, 1 DOSE/3 WEEKS
     Route: 065
     Dates: start: 2020
  2. DOXORUBICIN [Suspect]
     Active Substance: DOXORUBICIN
     Indication: Synovial sarcoma metastatic
     Dosage: ONE COURSE
     Route: 065
     Dates: start: 2017

REACTIONS (5)
  - Disease recurrence [Unknown]
  - Atrial fibrillation [Unknown]
  - Palpitations [Unknown]
  - Dyspnoea [Not Recovered/Not Resolved]
  - Cardiotoxicity [Unknown]

NARRATIVE: CASE EVENT DATE: 20200101
